FAERS Safety Report 7538813-X (Version None)
Quarter: 2011Q2

REPORT INFORMATION
  Report Type: 
  Country: None (occurrence: None)
  Receive Date: 20110610
  Receipt Date: 20091009
  Transmission Date: 20111010
  Serious: Yes (Other)
  Sender: FDA-Public Use
  Company Number: US-BAYER-200935581NA

PATIENT
  Age: 62 Year
  Sex: Male
  Weight: 81.633 kg

DRUGS (27)
  1. TRASYLOL [Suspect]
     Indication: CORONARY ARTERY BYPASS
     Dosage: 200ML X2
     Route: 042
     Dates: start: 20050329
  2. PREDNISONE [Concomitant]
     Indication: HIV TEST
     Dosage: 20 MG, BID
     Route: 048
  3. NORVIR [Concomitant]
     Indication: HIV TEST
     Dosage: 100 MG, QD
     Dates: start: 19970101
  4. AMLODIPINE [Concomitant]
     Dosage: UNK
     Dates: start: 19970101
  5. LASIX [Concomitant]
     Dosage: 10 MG, UNK
     Route: 042
     Dates: start: 20050329
  6. DANAZOL [Concomitant]
     Indication: HIV TEST
     Dosage: 200 MG, TID
     Route: 048
  7. EMTRIVA [Concomitant]
     Indication: HIV TEST
     Dosage: 200 MG, QD
     Route: 048
  8. PREVACID [Concomitant]
     Indication: GASTROOESOPHAGEAL REFLUX DISEASE
     Dosage: 30 MG, QD
     Route: 048
  9. IMMUNE GLOBULIN NOS [Concomitant]
     Indication: THROMBOCYTOPENIC PURPURA
  10. LIPITOR [Concomitant]
     Indication: HYPERLIPIDAEMIA
     Dosage: 80 MG, QD, PM
     Route: 048
     Dates: start: 19970101
  11. SEPTRA DS [Concomitant]
     Indication: PROPHYLAXIS
     Dosage: 1 TAB, TIW
     Route: 048
  12. NITROGLYCERIN [Concomitant]
     Dosage: 2.5 INCHES, TID
     Route: 061
  13. INSULIN [Concomitant]
     Indication: BLOOD GLUCOSE ABNORMAL
     Route: 058
  14. REYATAZ [Concomitant]
     Indication: HIV TEST
     Dosage: 150 MG, BID
     Route: 048
  15. IMMUNE GLOBULIN NOS [Concomitant]
     Indication: HIV TEST
     Dosage: 400 MG/KG, QD
     Route: 042
     Dates: start: 20050322, end: 20050328
  16. NITROGLYCERIN [Concomitant]
     Indication: CHEST PAIN
     Dosage: 0.5 MG, REPEAT IN FIVE MINUTES
     Route: 060
  17. ANCEF [Concomitant]
     Indication: PROPHYLAXIS
     Dosage: 1 G, ONCE
     Route: 042
     Dates: start: 20050329
  18. BACTRIM [Concomitant]
  19. DOBUTAMINE HYDROCHLORIDE [Concomitant]
     Dosage: UNK
     Route: 042
     Dates: start: 20050329
  20. TOPROL-XL [Concomitant]
     Indication: CARDIAC DISORDER
     Dosage: 100 MG, QD
     Route: 048
  21. LISINOPRIL [Concomitant]
     Indication: CARDIAC DISORDER
     Dosage: 20 MG, QD
     Route: 048
  22. HEPARIN [Concomitant]
     Dosage: 14 U/KG , Q1HR
     Route: 042
     Dates: start: 20050329
  23. ACETYLSALICYLIC ACID SRT [Concomitant]
     Dosage: 325 MG, QD
     Dates: start: 20070101
  24. VIREAD [Concomitant]
     Indication: HIV TEST
     Dosage: 300 MG, QD
     Route: 048
  25. METOPROLOL SUCCINATE [Concomitant]
     Dosage: UNK
     Route: 048
     Dates: start: 19970101
  26. LIPITOR [Concomitant]
     Dosage: 40 MG, UNK
  27. VIDEX EC [Concomitant]
     Indication: HIV TEST
     Dosage: 250 MG, QD
     Route: 048

REACTIONS (10)
  - INJURY [None]
  - STRESS [None]
  - RENAL INJURY [None]
  - ANXIETY [None]
  - RENAL IMPAIRMENT [None]
  - RENAL FAILURE [None]
  - PAIN [None]
  - EMOTIONAL DISTRESS [None]
  - UNEVALUABLE EVENT [None]
  - FEAR [None]
